FAERS Safety Report 16183772 (Version 1)
Quarter: 2019Q2

REPORT INFORMATION
  Report Type: Spontaneous
  Country: US (occurrence: US)
  Receive Date: 20190410
  Receipt Date: 20190410
  Transmission Date: 20190711
  Serious: No
  Sender: FDA-Public Use
  Company Number: None

PATIENT
  Age: 49 Year
  Sex: Female
  Weight: 103.5 kg

DRUGS (1)
  1. EMGALITY [Suspect]
     Active Substance: GALCANEZUMAB-GNLM
     Indication: MIGRAINE
     Dosage: ?          QUANTITY:2 INJECTION(S);OTHER FREQUENCY:2@START/1 MONTHLY;OTHER ROUTE:IN THE STOMACH AREA AWAY FROM THE NAVEL?
     Dates: start: 20190217, end: 20190217

REACTIONS (6)
  - Pruritus [None]
  - Back pain [None]
  - Asthenia [None]
  - Hypoaesthesia [None]
  - Pain in extremity [None]
  - Muscle spasms [None]

NARRATIVE: CASE EVENT DATE: 20190308
